FAERS Safety Report 10862987 (Version 1)
Quarter: 2015Q1

REPORT INFORMATION
  Report Type: Spontaneous
  Country: US (occurrence: None)
  Receive Date: 20150219
  Receipt Date: 20150219
  Transmission Date: 20150721
  Serious: Yes (Death)
  Sender: FDA-Public Use
  Company Number: ABR_02000_2015

PATIENT
  Age: 26 Year
  Sex: Male

DRUGS (4)
  1. .GAMMA.-AMINO-.BETA.-HYDROXYBUTYRIC ACID. [Suspect]
     Active Substance: .GAMMA.-AMINO-.BETA.-HYDROXYBUTYRIC ACID
     Indication: PRODUCT USED FOR UNKNOWN INDICATION
     Dosage: DF
  2. AMPHETAMINE [Suspect]
     Active Substance: AMPHETAMINE
     Indication: PRODUCT USED FOR UNKNOWN INDICATION
     Dosage: DF
  3. BETA BLOCKING AGENTS [Suspect]
     Active Substance: UNSPECIFIED INGREDIENT
     Indication: PRODUCT USED FOR UNKNOWN INDICATION
     Dosage: DF
  4. IBUPROFEN. [Suspect]
     Active Substance: IBUPROFEN
     Indication: PRODUCT USED FOR UNKNOWN INDICATION
     Dosage: DF

REACTIONS (3)
  - Cardiac arrest [None]
  - Respiratory arrest [None]
  - Poisoning [None]

NARRATIVE: CASE EVENT DATE: 2013
